FAERS Safety Report 5648836-3 (Version None)
Quarter: 2008Q1

REPORT INFORMATION
  Report Type: 
  Country: None (occurrence: None)
  Receive Date: 20080303
  Receipt Date: 20080303
  Transmission Date: 20080703
  Serious: No
  Sender: FDA-Public Use
  Company Number: None

PATIENT
  Age: 47 Year
  Sex: Male
  Weight: 83.9154 kg

DRUGS (1)
  1. ZICAM ZINCUM GLUCONICUM, 2X MATRIX INITIATIVES, INC. [Suspect]
     Indication: NASOPHARYNGITIS
     Dosage: ONE SPRAY PER NOSTRIL EVERY 4 HOURS NASAL
     Route: 045
     Dates: start: 20080227, end: 20080229

REACTIONS (2)
  - AGEUSIA [None]
  - ANOSMIA [None]
